FAERS Safety Report 9351157 (Version 1)
Quarter: 2013Q2

REPORT INFORMATION
  Report Type: Spontaneous
  Country: US (occurrence: US)
  Receive Date: 20130617
  Receipt Date: 20130617
  Transmission Date: 20140414
  Serious: No
  Sender: FDA-Public Use
  Company Number: US-UPSHER-SMITH LABORATORIES, INC.-13001382

PATIENT
  Age: 59 Year
  Sex: Female

DRUGS (4)
  1. KLOR-CON M [Suspect]
     Indication: BLOOD POTASSIUM DECREASED
     Dosage: 20 MEQ, QD
     Route: 048
     Dates: start: 201303, end: 201303
  2. KLOR-CON M [Suspect]
     Dosage: 20 MEQ, QD
     Route: 048
     Dates: start: 20130415
  3. KLOR-CON EF [Suspect]
     Indication: BLOOD POTASSIUM DECREASED
     Dosage: 25 MEQ, QD
     Route: 048
     Dates: start: 201303, end: 20130414
  4. CLONAZEPAM [Concomitant]
     Dosage: UNK

REACTIONS (6)
  - Swelling [Not Recovered/Not Resolved]
  - Throat tightness [Not Recovered/Not Resolved]
  - Nausea [Recovered/Resolved]
  - Diarrhoea [Recovered/Resolved]
  - Paraesthesia [Recovered/Resolved]
  - Chills [Not Recovered/Not Resolved]
